FAERS Safety Report 22356206 (Version 1)
Quarter: 2023Q2

REPORT INFORMATION
  Report Type: Spontaneous
  Country: US (occurrence: None)
  Receive Date: 20230523
  Receipt Date: 20230523
  Transmission Date: 20230721
  Serious: No
  Sender: FDA-Public Use
  Company Number: None

PATIENT
  Age: 72 Year
  Sex: Male

DRUGS (1)
  1. LENALIDOMIDE [Suspect]
     Active Substance: LENALIDOMIDE
     Indication: Monoclonal gammopathy
     Dosage: FREQUENCY : DAILY;?
     Route: 048
     Dates: start: 20230303

REACTIONS (4)
  - Pain in extremity [None]
  - Back pain [None]
  - Lumbar radiculopathy [None]
  - Spinal compression fracture [None]

NARRATIVE: CASE EVENT DATE: 20230515
